FAERS Safety Report 9029525 (Version 2)
Quarter: 2013Q1

REPORT INFORMATION
  Report Type: Spontaneous
  Country: CA (occurrence: CA)
  Receive Date: 20130125
  Receipt Date: 20130326
  Transmission Date: 20140127
  Serious: Yes (Hospitalization)
  Sender: FDA-Public Use
  Company Number: CA-AMGEN-CANSP2013003819

PATIENT
  Age: 65 Year
  Sex: Female
  Weight: 43.64 kg

DRUGS (1)
  1. PROLIA [Suspect]
     Indication: OSTEOPOROSIS POSTMENOPAUSAL
     Dosage: 60 MG, UNK
     Dates: start: 20120814

REACTIONS (13)
  - Gastroenteritis [Unknown]
  - Influenza [Unknown]
  - Aphagia [Unknown]
  - Gait disturbance [Unknown]
  - Musculoskeletal stiffness [Unknown]
  - Neuralgia [Unknown]
  - Burning sensation [Unknown]
  - Emphysema [Unknown]
  - Dizziness [Unknown]
  - Nausea [Unknown]
  - Tachycardia [Unknown]
  - Eczema [Unknown]
  - Pain in extremity [Unknown]
